FAERS Safety Report 20350493 (Version 1)
Quarter: 2022Q1

REPORT INFORMATION
  Report Type: Spontaneous
  Country: US (occurrence: US)
  Receive Date: 20220119
  Receipt Date: 20220119
  Transmission Date: 20220423
  Serious: No
  Sender: FDA-Public Use
  Company Number: US-ALLERGAN-2117587US

PATIENT
  Sex: Female

DRUGS (3)
  1. ACTIGALL [Suspect]
     Active Substance: URSODIOL
     Indication: Gallbladder disorder
     Dosage: UNK
     Dates: start: 202104
  2. LENVIMA [Suspect]
     Active Substance: LENVATINIB
     Indication: Thyroid cancer
     Dosage: 20 MG, QD
     Dates: start: 20210212, end: 20210507
  3. UNSPECIFIED INGREDIENT [Concomitant]
     Active Substance: UNSPECIFIED INGREDIENT
     Indication: Blood pressure increased
     Dosage: UNK
     Dates: start: 202104

REACTIONS (4)
  - Feeling of body temperature change [Unknown]
  - Asthenia [Unknown]
  - Rash [Unknown]
  - Headache [Unknown]

NARRATIVE: CASE EVENT DATE: 20210501
